FAERS Safety Report 17056009 (Version 3)
Quarter: 2019Q4

REPORT INFORMATION
  Report Type: Report from Study
  Country: JP (occurrence: JP)
  Receive Date: 20191121
  Receipt Date: 20191220
  Transmission Date: 20200122
  Serious: Yes (Hospitalization)
  Sender: FDA-Public Use
  Company Number: JP-BRISTOL-MYERS SQUIBB COMPANY-BMS-2019-110863

PATIENT
  Age: 78 Year
  Sex: Male
  Weight: 38 kg

DRUGS (8)
  1. VONOPRAZAN FUMARATE [Concomitant]
     Active Substance: VONOPRAZAN FUMURATE
     Indication: GASTRITIS PROPHYLAXIS
     Dosage: 20 MG, EVERYDAY
     Route: 048
  2. AROTINOLOL HYDROCHLORIDE [Concomitant]
     Active Substance: AROTINOLOL HYDROCHLORIDE
     Indication: HYPERTENSION
     Dosage: 20 MG, EVERYDAY
     Route: 048
  3. METRONIDAZOLE AMEL [Concomitant]
     Indication: PROPHYLAXIS
     Dosage: APPROPRIATE DOSE, EVERYDAY
     Route: 061
  4. NIVOLUMAB [Suspect]
     Active Substance: NIVOLUMAB
     Indication: COLON CANCER
     Dosage: 360 MILLIGRAM
     Route: 041
     Dates: start: 20190305
  5. SODIUM POLYSTYRENE SULFONATE. [Concomitant]
     Active Substance: SODIUM POLYSTYRENE SULFONATE
     Indication: RENAL IMPAIRMENT
     Dosage: 3.27 MG, EVERYDAY
     Route: 048
     Dates: start: 20190430
  6. IRBESARTAN CHEMIPHA [Concomitant]
     Indication: HYPERTENSION
     Dosage: 100 MG, EVERYDAY
     Route: 048
     Dates: start: 20190508
  7. TRAMADOL. [Concomitant]
     Active Substance: TRAMADOL
     Indication: PAIN PROPHYLAXIS
     Dosage: 75 MG, Q12H
     Route: 048
  8. FEBUXOSTAT. [Concomitant]
     Active Substance: FEBUXOSTAT
     Indication: HYPERURICAEMIA
     Dosage: 40 MG, EVERYDAY
     Route: 048

REACTIONS (4)
  - Painful respiration [Unknown]
  - Hyponatraemia [Recovering/Resolving]
  - Decreased appetite [Recovered/Resolved]
  - Fatigue [Recovering/Resolving]

NARRATIVE: CASE EVENT DATE: 20191112
